FAERS Safety Report 4437894-X (Version None)
Quarter: 2004Q3

REPORT INFORMATION
  Report Type: 
  Country: None (occurrence: None)
  Receive Date: 20040831
  Receipt Date: 20040820
  Transmission Date: 20050211
  Serious: Yes (Other)
  Sender: FDA-Public Use
  Company Number: GB-BRISTOL-MYERS SQUIBB COMPANY-12685939

PATIENT
  Age: 18 Month

DRUGS (3)
  1. ENDOXAN [Suspect]
     Indication: BONE MARROW TRANSPLANT
     Route: 042
  2. BUSULFAN [Suspect]
     Indication: BONE MARROW TRANSPLANT
     Route: 048
  3. FLUDARABINE PHOSPHATE [Suspect]
     Indication: BONE MARROW TRANSPLANT

REACTIONS (1)
  - VENOOCCLUSIVE LIVER DISEASE [None]
